FAERS Safety Report 17715459 (Version 2)
Quarter: 2020Q2

REPORT INFORMATION
  Report Type: Spontaneous
  Country: IT (occurrence: IT)
  Receive Date: 20200427
  Receipt Date: 20200430
  Transmission Date: 20200714
  Serious: Yes (Other)
  Sender: FDA-Public Use
  Company Number: IT-PFIZER INC-2020166183

PATIENT
  Age: 57 Year
  Sex: Male

DRUGS (9)
  1. IRINOTECAN HCL [Suspect]
     Active Substance: IRINOTECAN HYDROCHLORIDE
     Indication: METASTASES TO LIVER
     Dosage: 180 MG/M2, CYCLIC
     Dates: start: 201605
  2. IRINOTECAN HCL [Suspect]
     Active Substance: IRINOTECAN HYDROCHLORIDE
     Dosage: UNK, CYCLIC (20% DOSE REDUCTION)
     Dates: end: 201608
  3. FLUOROURACIL. [Suspect]
     Active Substance: FLUOROURACIL
     Dosage: UNK (20% DOSE REDUCTION)
     Route: 040
     Dates: end: 201608
  4. FLUOROURACIL. [Suspect]
     Active Substance: FLUOROURACIL
     Indication: METASTASES TO LIVER
     Dosage: 2400 MG/M2, CYCLIC, (GIVEN AS A 46 H CONTINUOUS INFUSION 1Q 14)
     Dates: start: 201605
  5. FOLINIC ACID [Suspect]
     Active Substance: LEUCOVORIN
     Dosage: UNK, CYCLIC (20% DOSE REDUCTION)
     Dates: end: 201608
  6. FLUOROURACIL. [Suspect]
     Active Substance: FLUOROURACIL
     Dosage: 400 MG/M2, CYCLIC, BOLUS
     Route: 040
     Dates: start: 201605
  7. OXALIPLATIN. [Suspect]
     Active Substance: OXALIPLATIN
     Indication: METASTASES TO LIVER
     Dosage: 85 MG/M2, CYCLIC
     Dates: start: 201605
  8. OXALIPLATIN. [Suspect]
     Active Substance: OXALIPLATIN
     Dosage: UNK, CYCLIC (20% DOSE REDUCTION)
     Dates: end: 201608
  9. FOLINIC ACID [Suspect]
     Active Substance: LEUCOVORIN
     Indication: METASTASES TO LIVER
     Dosage: 400 MG/M2, CYCLIC
     Dates: start: 201605

REACTIONS (1)
  - Neutropenia [Not Recovered/Not Resolved]
